FAERS Safety Report 8246125-4 (Version None)
Quarter: 2012Q1

REPORT INFORMATION
  Report Type: 
  Country: None (occurrence: None)
  Receive Date: 20120330
  Receipt Date: 20120322
  Transmission Date: 20120608
  Serious: Yes (Hospitalization, Other)
  Sender: FDA-Public Use
  Company Number: CA-ELI_LILLY_AND_COMPANY-CA201203007049

PATIENT
  Age: 76 Year
  Sex: Female

DRUGS (10)
  1. FORTEO [Suspect]
     Indication: OSTEOPOROSIS
     Dosage: 20 UG, QD
     Route: 058
     Dates: start: 20110502
  2. AMLODIPINE [Concomitant]
  3. SYNTHROID [Concomitant]
  4. BISOPROLOL FUMARATE [Concomitant]
  5. FENOFIBRATE [Concomitant]
  6. IRBESARTAN [Concomitant]
  7. CODEINE [Concomitant]
  8. TYLENOL ARTHRITIS [Concomitant]
  9. ASPIRIN [Concomitant]
     Dosage: 81 MG, UNK
  10. WARFARIN SODIUM [Concomitant]

REACTIONS (5)
  - CARDIAC FAILURE CONGESTIVE [None]
  - ARTHROPATHY [None]
  - FALL [None]
  - HIP FRACTURE [None]
  - KNEE ARTHROPLASTY [None]
